FAERS Safety Report 8002210-3 (Version None)
Quarter: 2011Q4

REPORT INFORMATION
  Report Type: 
  Country: None (occurrence: None)
  Receive Date: 20111219
  Receipt Date: 20111205
  Transmission Date: 20120403
  Serious: Yes (Death, Other)
  Sender: FDA-Public Use
  Company Number: 2011MA017330

PATIENT

DRUGS (1)
  1. GEMCITABINE HYDROCHLORIDE [Suspect]
     Indication: T-CELL LYMPHOMA

REACTIONS (3)
  - HISTIOCYTOSIS HAEMATOPHAGIC [None]
  - THERAPEUTIC RESPONSE DECREASED [None]
  - EPSTEIN-BARR VIRUS TEST POSITIVE [None]
